FAERS Safety Report 8002067-0 (Version None)
Quarter: 2011Q4

REPORT INFORMATION
  Report Type: 
  Country: None (occurrence: None)
  Receive Date: 20111222
  Receipt Date: 20111212
  Transmission Date: 20120403
  Serious: Yes (Other)
  Sender: FDA-Public Use
  Company Number: DE-MYLANLABS-2011S1025421

PATIENT
  Age: 72 Year
  Sex: Female
  Weight: 98 kg

DRUGS (1)
  1. METFORMIN HCL [Suspect]
     Indication: DIABETES MELLITUS
     Route: 048
     Dates: end: 20111208

REACTIONS (3)
  - NAUSEA [None]
  - VERTIGO [None]
  - GASTRIC DISORDER [None]
